FAERS Safety Report 9846353 (Version 2)
Quarter: 2014Q2

REPORT INFORMATION
  Report Type: Spontaneous
  Country: IT (occurrence: IT)
  Receive Date: 20140127
  Receipt Date: 20140416
  Transmission Date: 20141212
  Serious: Yes (Life-Threatening)
  Sender: FDA-Public Use
  Company Number: IT-BRISTOL-MYERS SQUIBB COMPANY-20050811

PATIENT
  Age: 82 Year
  Sex: Female

DRUGS (2)
  1. COUMADIN TABS 5 MG [Suspect]
     Indication: DEEP VEIN THROMBOSIS
     Route: 048
     Dates: start: 20131023, end: 20131024
  2. CLEXANE [Suspect]
     Indication: DEEP VEIN THROMBOSIS
     Dosage: 1 DF= CLEXANE ^4000 IU AXA INJECTION SOLUTION^ ?DOSAGE/2/UNIT/DAILY
     Route: 058
     Dates: start: 20130924, end: 20131024

REACTIONS (3)
  - Cerebellar haemorrhage [Unknown]
  - Intraventricular haemorrhage [Unknown]
  - Drug administration error [Unknown]
